FAERS Safety Report 7772565-3 (Version None)
Quarter: 2011Q3

REPORT INFORMATION
  Report Type: 
  Country: None (occurrence: None)
  Receive Date: 20110922
  Receipt Date: 20110505
  Transmission Date: 20111222
  Serious: No
  Sender: FDA-Public Use
  Company Number: US-ASTRAZENECA-2011SE26972

PATIENT
  Sex: Female
  Weight: 118.4 kg

DRUGS (10)
  1. LOVASTATIN [Concomitant]
     Indication: BLOOD CHOLESTEROL
  2. GEODON [Concomitant]
  3. LEURICA [Concomitant]
     Indication: FIBROMYALGIA
  4. SEROQUEL [Suspect]
     Route: 048
  5. CELEXA [Concomitant]
     Indication: DEPRESSION
  6. HYDROCHLOROTHIAZIDE [Concomitant]
     Indication: BLOOD PRESSURE
  7. COGENTIN [Concomitant]
     Indication: NONSPECIFIC REACTION
     Dosage: DAILY
  8. ASPIRIN [Concomitant]
     Indication: ANTICOAGULANT THERAPY
  9. SEROQUEL [Suspect]
     Indication: MENTAL DISORDER
     Route: 048
  10. METOPROLOL [Concomitant]
     Indication: BLOOD PRESSURE

REACTIONS (5)
  - DRUG DOSE OMISSION [None]
  - WRONG DRUG ADMINISTERED [None]
  - AGITATION [None]
  - MANIA [None]
  - DRUG WITHDRAWAL SYNDROME [None]
